FAERS Safety Report 24598720 (Version 1)
Quarter: 2024Q4

REPORT INFORMATION
  Report Type: Spontaneous
  Country: US (occurrence: US)
  Receive Date: 20241110
  Receipt Date: 20241110
  Transmission Date: 20250115
  Serious: No
  Sender: ELI LILLY AND COMPANY
  Company Number: US-ELI_LILLY_AND_COMPANY-US202411003583

PATIENT
  Age: 78 Year
  Sex: Female

DRUGS (4)
  1. ZEPBOUND [Suspect]
     Active Substance: TIRZEPATIDE
     Indication: Weight control
     Dosage: 2.5 MG, UNKNOWN
     Route: 058
     Dates: start: 20241105
  2. CELECOXIB [Concomitant]
     Active Substance: CELECOXIB
     Indication: Arthritis
  3. PRALUENT [Concomitant]
     Active Substance: ALIROCUMAB
     Indication: Dyslipidaemia
  4. CARVEDILOL [Concomitant]
     Active Substance: CARVEDILOL
     Indication: Dyslipidaemia
     Dosage: 3.125 MG

REACTIONS (1)
  - Accidental underdose [Unknown]

NARRATIVE: CASE EVENT DATE: 20241105
